FAERS Safety Report 8995821 (Version 2)
Quarter: 2013Q1

REPORT INFORMATION
  Report Type: Spontaneous
  Country: JP (occurrence: JP)
  Receive Date: 20130103
  Receipt Date: 20130121
  Transmission Date: 20140127
  Serious: Yes (Hospitalization, Other)
  Sender: FDA-Public Use
  Company Number: PHHY2012JP121207

PATIENT
  Sex: Female
  Weight: 63 kg

DRUGS (2)
  1. DICLOFENAC [Suspect]
     Indication: ARTHRALGIA
     Route: 048
  2. OMEPRAZOLE [Suspect]
     Dosage: UNK UKN, UNK

REACTIONS (11)
  - Gastrointestinal carcinoma [Unknown]
  - Ileus [Unknown]
  - Intestinal obstruction [Unknown]
  - Abdominal pain [Unknown]
  - Abdominal distension [Unknown]
  - Small intestinal stenosis [Unknown]
  - Intestinal dilatation [Unknown]
  - Peritoneal disorder [Unknown]
  - Gastric ulcer haemorrhage [Unknown]
  - Metastases to lymph nodes [Unknown]
  - Hypotension [Unknown]
